FAERS Safety Report 4948278-X (Version None)
Quarter: 2006Q1

REPORT INFORMATION
  Report Type: 
  Country: None (occurrence: None)
  Receive Date: 20060313
  Receipt Date: 20060302
  Transmission Date: 20060701
  Serious: Yes (Other)
  Sender: FDA-Public Use
  Company Number: 222281

PATIENT
  Age: 15 Year
  Sex: Male
  Weight: 46.1 kg

DRUGS (1)
  1. NUTROPIN AQ [Suspect]
     Indication: GROWTH HORMONE DEFICIENCY
     Dosage: 1.4 MG, 6/WEEK, SUBCUTANEOUS
     Route: 058
     Dates: start: 20050201

REACTIONS (2)
  - CONDITION AGGRAVATED [None]
  - GLAUCOMA [None]
